FAERS Safety Report 5014998-4 (Version None)
Quarter: 2006Q2

REPORT INFORMATION
  Report Type: 
  Country: None (occurrence: None)
  Receive Date: 20060425
  Receipt Date: 20050525
  Transmission Date: 20061013
  Serious: Yes (Life-Threatening, Other)
  Sender: FDA-Public Use
  Company Number: WAES 0505USA03067

PATIENT
  Age: 5 Year
  Sex: Male

DRUGS (2)
  1. SINGULAIR [Suspect]
     Indication: RHINITIS SEASONAL
     Dosage: 4 MG/DAILY/PO
     Route: 048
     Dates: start: 20050411, end: 20050519
  2. RHINOCORT AQUA [Concomitant]

REACTIONS (2)
  - ADVERSE EVENT [None]
  - CONVULSION [None]
